FAERS Safety Report 7801933-6 (Version None)
Quarter: 2011Q4

REPORT INFORMATION
  Report Type: 
  Country: None (occurrence: None)
  Receive Date: 20111007
  Receipt Date: 20111007
  Transmission Date: 20120403
  Serious: No
  Sender: FDA-Public Use
  Company Number: None

PATIENT
  Sex: Male
  Weight: 119.74 kg

DRUGS (2)
  1. VIIBRYD [Suspect]
     Indication: DEPRESSION
     Dosage: 20 MG
     Route: 048
     Dates: start: 20111001, end: 20111005
  2. CYMBALTA [Concomitant]
     Route: 048

REACTIONS (9)
  - CONFUSIONAL STATE [None]
  - DISTURBANCE IN ATTENTION [None]
  - INSOMNIA [None]
  - MENTAL IMPAIRMENT [None]
  - INCREASED APPETITE [None]
  - FEELING ABNORMAL [None]
  - ABNORMAL DREAMS [None]
  - HYPERHIDROSIS [None]
  - DIARRHOEA [None]
